FAERS Safety Report 24787100 (Version 4)
Quarter: 2025Q3

REPORT INFORMATION
  Report Type: Report from Study
  Country: US (occurrence: US)
  Receive Date: 20241230
  Receipt Date: 20250708
  Transmission Date: 20251020
  Serious: Yes (Other)
  Sender: UCB
  Company Number: US-UCBSA-2024067746

PATIENT
  Age: 15 Year
  Sex: Male
  Weight: 65.09 kg

DRUGS (2)
  1. FINTEPLA [Suspect]
     Active Substance: FENFLURAMINE
     Indication: Lennox-Gastaut syndrome
     Dosage: 5.9 MILLILITER, 2X/DAY (BID)
     Dates: start: 20230811
  2. FINTEPLA [Suspect]
     Active Substance: FENFLURAMINE

REACTIONS (5)
  - Mitral valve thickening [Unknown]
  - Cardiac index increased [Unknown]
  - Ear infection [Not Recovered/Not Resolved]
  - Somnolence [Not Recovered/Not Resolved]
  - Product use issue [Unknown]

NARRATIVE: CASE EVENT DATE: 20241213
